FAERS Safety Report 6221100-X (Version None)
Quarter: 2009Q2

REPORT INFORMATION
  Report Type: 
  Country: None (occurrence: None)
  Receive Date: 20090610
  Receipt Date: 20090603
  Transmission Date: 20091009
  Serious: Yes (Other)
  Sender: FDA-Public Use
  Company Number: B0576079A

PATIENT
  Sex: Male

DRUGS (8)
  1. SERETIDE [Suspect]
     Indication: ASTHMA
     Dosage: 250MCG TWICE PER DAY
     Route: 055
     Dates: start: 20081114, end: 20090520
  2. PULMICORT-100 [Suspect]
     Indication: DRUG USE FOR UNKNOWN INDICATION
     Route: 065
     Dates: start: 20090521
  3. PREDONINE [Concomitant]
     Indication: MYASTHENIA GRAVIS
     Dosage: 30MG PER DAY
     Route: 048
     Dates: start: 20051102
  4. PROGRAF [Concomitant]
     Indication: MYASTHENIA GRAVIS
     Dosage: 3MG PER DAY
     Route: 048
     Dates: start: 20071023
  5. THEOLONG [Concomitant]
     Indication: ASTHMA
     Dosage: 800MG PER DAY
     Route: 048
     Dates: start: 20081114
  6. CHERRY BARK EXTRACT + CODEINE [Concomitant]
     Indication: COUGH
     Dosage: 4.5ML PER DAY
     Route: 048
     Dates: start: 20090506, end: 20090507
  7. UNKNOWN [Concomitant]
     Indication: COUGH
     Route: 048
     Dates: start: 20090508, end: 20090513
  8. OMEPRAL [Concomitant]
     Dosage: 20MG PER DAY
     Route: 048
     Dates: start: 20090510

REACTIONS (7)
  - CHOKING [None]
  - COUGH [None]
  - DYSPHONIA [None]
  - GENERAL PHYSICAL HEALTH DETERIORATION [None]
  - HYPOPHAGIA [None]
  - VOCAL CORD ATROPHY [None]
  - VOCAL CORD DISORDER [None]
